FAERS Safety Report 25887435 (Version 6)
Quarter: 2025Q4

REPORT INFORMATION
  Report Type: Report from Study
  Country: CO (occurrence: CO)
  Receive Date: 20251006
  Receipt Date: 20251226
  Transmission Date: 20260118
  Serious: Yes (Death, Hospitalization)
  Sender: ABBVIE
  Company Number: CO-JNJFOC-20250902022

PATIENT
  Age: 81 Year
  Sex: Female
  Weight: 37 kg

DRUGS (2)
  1. IMBRUVICA [Suspect]
     Active Substance: IBRUTINIB
     Indication: Chronic lymphocytic leukaemia
     Dosage: LAST TREATMENT WAS ADMINISTERED ON 31 JUL 2025
     Route: 048
     Dates: start: 20240306
  2. CLARITHROMYCIN [Concomitant]
     Active Substance: CLARITHROMYCIN
     Indication: Product used for unknown indication

REACTIONS (9)
  - Death [Fatal]
  - Pneumonia [Not Recovered/Not Resolved]
  - Product dose omission issue [Unknown]
  - Product availability issue [Unknown]
  - Gait inability [Unknown]
  - Fatigue [Unknown]
  - Oxygen saturation decreased [Unknown]
  - Decubitus ulcer [Unknown]
  - Gastrointestinal haemorrhage [Unknown]

NARRATIVE: CASE EVENT DATE: 20250911
